FAERS Safety Report 5731097-4 (Version None)
Quarter: 2008Q2

REPORT INFORMATION
  Report Type: 
  Country: None (occurrence: None)
  Receive Date: 20080505
  Receipt Date: 20080421
  Transmission Date: 20081010
  Serious: Yes (Hospitalization)
  Sender: FDA-Public Use
  Company Number: 2008SP000934

PATIENT
  Age: 79 Year
  Sex: Female
  Weight: 81.6475 kg

DRUGS (2)
  1. LUNESTA [Suspect]
     Indication: INSOMNIA
     Dosage: 3 MG; ORAL
     Route: 048
     Dates: start: 20080401, end: 20080421
  2. ANTIDEPRESSANTS [Concomitant]

REACTIONS (3)
  - DEPRESSED LEVEL OF CONSCIOUSNESS [None]
  - KIDNEY INFECTION [None]
  - OVERDOSE [None]
